FAERS Safety Report 7136540-4 (Version None)
Quarter: 2010Q4

REPORT INFORMATION
  Report Type: 
  Country: None (occurrence: None)
  Receive Date: 20101206
  Receipt Date: 20030916
  Transmission Date: 20110411
  Serious: Yes (Death, Hospitalization)
  Sender: FDA-Public Use
  Company Number: GB-ACTELION-A-CH2003-02433

PATIENT
  Sex: Female

DRUGS (7)
  1. BOSENTAN TABLET 62.5 MG EU [Suspect]
     Indication: PULMONARY ARTERIAL HYPERTENSION
     Dosage: 62.5 MG, BID
     Route: 048
     Dates: start: 20020830, end: 20020930
  2. BOSENTAN TABLET 62.5 MG EU [Suspect]
     Dosage: 125 MG, BID
     Route: 048
     Dates: start: 20020930
  3. DIGOXIN [Concomitant]
     Dosage: 125 MCG, UNK
  4. SPIRONOLACTONE [Concomitant]
     Dosage: 175 MG, OD
  5. FRUSEMIDE [Concomitant]
     Dosage: 80 MG, OD
  6. WARFARIN SODIUM [Concomitant]
  7. BISOPROLOL FUMARATE [Concomitant]
     Dosage: 5 MG, UNK

REACTIONS (3)
  - DEATH [None]
  - HAEMOGLOBIN DECREASED [None]
  - PEPTIC ULCER [None]
